FAERS Safety Report 20095921 (Version 1)
Quarter: 2021Q4

REPORT INFORMATION
  Report Type: Report from Study
  Country: CO (occurrence: CO)
  Receive Date: 20211122
  Receipt Date: 20211122
  Transmission Date: 20220303
  Serious: Yes (Hospitalization, Other)
  Sender: FDA-Public Use
  Company Number: CO-ASTELLAS-2021US044206

PATIENT
  Age: 82 Year
  Sex: Female
  Weight: 46 kg

DRUGS (1)
  1. TACROLIMUS [Suspect]
     Active Substance: TACROLIMUS
     Indication: Renal transplant
     Route: 048
     Dates: start: 20200914, end: 202110

REACTIONS (6)
  - Pulmonary oedema [Recovering/Resolving]
  - Syncope [Recovering/Resolving]
  - Blood electrolytes decreased [Recovering/Resolving]
  - Blood urea abnormal [Recovering/Resolving]
  - Blood creatinine abnormal [Recovering/Resolving]
  - Weight decreased [Recovering/Resolving]

NARRATIVE: CASE EVENT DATE: 20210601
